FAERS Safety Report 8950861 (Version 1)
Quarter: 2012Q4

REPORT INFORMATION
  Report Type: Spontaneous
  Country: US (occurrence: None)
  Receive Date: 20121204
  Receipt Date: 20121204
  Transmission Date: 20130627
  Serious: No
  Sender: FDA-Public Use
  Company Number: None

PATIENT
  Age: 59 Year
  Sex: Female

DRUGS (1)
  1. XELODA 500MG GENETECH [Suspect]
     Dosage: 3 tablets  (1500mg)   Twice a day   Oral
     Route: 048
     Dates: start: 20121128, end: 20121128

REACTIONS (3)
  - Heart rate irregular [None]
  - Dyspnoea [None]
  - Dizziness [None]
